FAERS Safety Report 6212735-9 (Version None)
Quarter: 2009Q2

REPORT INFORMATION
  Report Type: 
  Country: None (occurrence: None)
  Receive Date: 20090603
  Receipt Date: 20090527
  Transmission Date: 20091009
  Serious: Yes (Other)
  Sender: FDA-Public Use
  Company Number: PHHY2009GB20961

PATIENT
  Sex: Female

DRUGS (1)
  1. GLEEVEC [Suspect]
     Dosage: 200 MG/DAY

REACTIONS (4)
  - APHASIA [None]
  - BLOOD CREATININE INCREASED [None]
  - MALAISE [None]
  - PARAESTHESIA ORAL [None]
